FAERS Safety Report 5741105-2 (Version None)
Quarter: 2008Q2

REPORT INFORMATION
  Report Type: 
  Country: None (occurrence: None)
  Receive Date: 20080514
  Receipt Date: 20080506
  Transmission Date: 20081010
  Serious: Yes (Hospitalization)
  Sender: FDA-Public Use
  Company Number: CHPA2008US04080

PATIENT
  Age: 60 Year
  Sex: Female

DRUGS (1)
  1. EXCEDRIN (MIGRAINE) [Suspect]
     Indication: HEADACHE
     Dosage: 3 DF, ONCE/SINGLE, ORAL
     Route: 048
     Dates: start: 20080227, end: 20080227

REACTIONS (6)
  - ASTHENIA [None]
  - BLOOD PRESSURE INCREASED [None]
  - HYPOAESTHESIA [None]
  - HYPOKINESIA [None]
  - INCORRECT DOSE ADMINISTERED [None]
  - TRANSIENT ISCHAEMIC ATTACK [None]
